FAERS Safety Report 10070986 (Version 1)
Quarter: 2014Q2

REPORT INFORMATION
  Report Type: Spontaneous
  Country: FR (occurrence: FR)
  Receive Date: 20140410
  Receipt Date: 20140410
  Transmission Date: 20141212
  Serious: Yes (Hospitalization)
  Sender: FDA-Public Use
  Company Number: FR-VIIV HEALTHCARE LIMITED-B0971010A

PATIENT
  Age: 59 Year
  Sex: Male

DRUGS (2)
  1. COMBIVIR [Suspect]
     Indication: HIV INFECTION
     Route: 048
     Dates: start: 20050808, end: 20050823
  2. KALETRA [Concomitant]
     Indication: HIV INFECTION
     Route: 065
     Dates: start: 20050808

REACTIONS (1)
  - Aplastic anaemia [Recovered/Resolved]
